FAERS Safety Report 13661245 (Version 1)
Quarter: 2017Q2

REPORT INFORMATION
  Report Type: Report from Study
  Country: US (occurrence: US)
  Receive Date: 20170616
  Receipt Date: 20170616
  Transmission Date: 20170830
  Serious: No
  Sender: FDA-Public Use
  Company Number: US-US WORLDMEDS, LLC-USW201701-000154

PATIENT
  Sex: Male
  Weight: 81.46 kg

DRUGS (13)
  1. METOPROLOL. [Concomitant]
     Active Substance: METOPROLOL
  2. LISINOPRIL. [Concomitant]
     Active Substance: LISINOPRIL
  3. MOBIC [Concomitant]
     Active Substance: MELOXICAM
  4. SINEMET [Concomitant]
     Active Substance: CARBIDOPA\LEVODOPA
  5. PROTONIX [Concomitant]
     Active Substance: PANTOPRAZOLE SODIUM
  6. ROPINIROLE. [Concomitant]
     Active Substance: ROPINIROLE
  7. TIGAN [Concomitant]
     Active Substance: TRIMETHOBENZAMIDE HYDROCHLORIDE
  8. SIMVASTATIN. [Concomitant]
     Active Substance: SIMVASTATIN
  9. CARBOXYMETHYLCELLULOSE [Concomitant]
     Active Substance: CARBOXYMETHYLCELLULOSE
  10. GABAPENTIN. [Concomitant]
     Active Substance: GABAPENTIN
  11. APOKYN [Suspect]
     Active Substance: APOMORPHINE HYDROCHLORIDE
     Indication: PARKINSON^S DISEASE
     Route: 058
     Dates: start: 20161212
  12. AZILECT [Concomitant]
     Active Substance: RASAGILINE MESYLATE
  13. ASA [Concomitant]
     Active Substance: ASPIRIN

REACTIONS (2)
  - Abdominal pain [Unknown]
  - Drug ineffective [Unknown]
